FAERS Safety Report 5154902-1 (Version None)
Quarter: 2006Q4

REPORT INFORMATION
  Report Type: 
  Country: None (occurrence: None)
  Receive Date: 20061121
  Receipt Date: 20061108
  Transmission Date: 20070319
  Serious: Yes (Hospitalization)
  Sender: FDA-Public Use
  Company Number: 2006CG01823

PATIENT
  Age: 68 Year
  Sex: Male
  Weight: 89 kg

DRUGS (5)
  1. CRESTOR [Suspect]
     Indication: DYSLIPIDAEMIA
     Route: 048
     Dates: start: 20050601, end: 20060530
  2. TICLID [Concomitant]
     Dates: start: 19930101
  3. COKENZEN [Concomitant]
     Dates: start: 20040830
  4. ZANIDIP [Concomitant]
     Dates: start: 20040830
  5. ART 50 [Concomitant]
     Dates: end: 20060523

REACTIONS (1)
  - CRYPTOGENIC ORGANISING PNEUMONIA [None]
